FAERS Safety Report 6809467-2 (Version None)
Quarter: 2010Q2

REPORT INFORMATION
  Report Type: 
  Country: None (occurrence: None)
  Receive Date: 20100630
  Receipt Date: 20100609
  Transmission Date: 20101027
  Serious: Yes (Hospitalization, Other)
  Sender: FDA-Public Use
  Company Number: FR-ABBOTT-10P-056-0625270-00

PATIENT
  Sex: Female

DRUGS (11)
  1. RITONAVIR SOFT GELATIN CAPSULES [Suspect]
     Indication: HIV INFECTION
     Route: 048
     Dates: start: 20060101
  2. SERETIDE DISCUS [Interacting]
     Indication: CHRONIC OBSTRUCTIVE PULMONARY DISEASE
     Route: 055
     Dates: start: 20081101, end: 20100115
  3. REYATAZ [Suspect]
     Indication: HIV INFECTION
     Route: 048
     Dates: start: 20060101
  4. BACTRIM [Concomitant]
     Indication: HIV INFECTION
  5. ZYPREXA [Concomitant]
     Indication: DRUG USE FOR UNKNOWN INDICATION
  6. LARGACTIL [Concomitant]
     Indication: DRUG USE FOR UNKNOWN INDICATION
  7. VENTOLIN [Concomitant]
     Indication: DRUG USE FOR UNKNOWN INDICATION
  8. SUBUTEX [Concomitant]
     Indication: DRUG USE FOR UNKNOWN INDICATION
     Dates: start: 19940101
  9. BRICANYL [Concomitant]
     Indication: DRUG USE FOR UNKNOWN INDICATION
     Dates: start: 20100114
  10. ATROVENT [Concomitant]
     Indication: DRUG USE FOR UNKNOWN INDICATION
     Dates: start: 20100114
  11. AUGMENTIN '125' [Concomitant]
     Indication: DRUG USE FOR UNKNOWN INDICATION
     Dates: start: 20100114

REACTIONS (5)
  - ADRENAL INSUFFICIENCY [None]
  - ASCITES [None]
  - CHRONIC OBSTRUCTIVE PULMONARY DISEASE [None]
  - CUSHING'S SYNDROME [None]
  - DRUG INTERACTION [None]
